FAERS Safety Report 14532630 (Version 1)
Quarter: 2018Q1

REPORT INFORMATION
  Report Type: Spontaneous
  Country: US (occurrence: US)
  Receive Date: 20180213
  Receipt Date: 20180213
  Transmission Date: 20180509
  Serious: Yes (Hospitalization)
  Sender: FDA-Public Use
  Company Number: None

PATIENT
  Age: 59 Year
  Sex: Male

DRUGS (2)
  1. MEKINIST [Suspect]
     Active Substance: TRAMETINIB DIMETHYL SULFOXIDE
     Indication: MALIGNANT MELANOMA
     Dosage: ROUTE - PO 1HR BEFORE OR 2HR AFTER A MEAL
     Route: 048
     Dates: start: 20180124
  2. TAFINLAR [Suspect]
     Active Substance: DABRAFENIB MESYLATE
     Indication: MALIGNANT MELANOMA
     Dosage: ROUTE - PO 1HR BEFORE OR 2HR AFTER A MEAL
     Route: 048
     Dates: start: 20180124

REACTIONS (2)
  - Dehydration [None]
  - Haemorrhage [None]
